FAERS Safety Report 24362882 (Version 1)
Quarter: 2024Q3

REPORT INFORMATION
  Report Type: Spontaneous
  Country: US (occurrence: None)
  Receive Date: 20240925
  Receipt Date: 20240925
  Transmission Date: 20241017
  Serious: No
  Sender: Public
  Company Number: None

PATIENT
  Age: 54 Year
  Sex: Female
  Weight: 83.7 kg

DRUGS (12)
  1. REPATHA [Suspect]
     Active Substance: EVOLOCUMAB
     Indication: Low density lipoprotein increased
     Dosage: 1 INJECTION EVERY 2 WEEKS SUBCUTANEOUS
     Route: 058
     Dates: start: 20240815, end: 20240829
  2. SYNTHROID [Concomitant]
     Active Substance: LEVOTHYROXINE SODIUM
  3. ALBUTEROL [Concomitant]
     Active Substance: ALBUTEROL
  4. EPIPEN [Concomitant]
     Active Substance: EPINEPHRINE
  5. CLARITIN [Concomitant]
     Active Substance: LORATADINE
  6. LOW-DOSE ASPIRIN [Concomitant]
     Active Substance: ASPIRIN
  7. vitamins A [Concomitant]
  8. VITAMIN D [Concomitant]
     Active Substance: VITAMIN D NOS
  9. VITAMIN K [Concomitant]
     Active Substance: PHYTONADIONE
  10. SELENIUM [Concomitant]
     Active Substance: SELENIUM
  11. zinc with copper [Concomitant]
  12. methyl vitamin B12 with methyl folate [Concomitant]

REACTIONS (7)
  - Pyrexia [None]
  - Nasopharyngitis [None]
  - Ear congestion [None]
  - Hypoacusis [None]
  - Dizziness postural [None]
  - Sneezing [None]
  - Vertigo [None]

NARRATIVE: CASE EVENT DATE: 20240821
